FAERS Safety Report 20023463 (Version 2)
Quarter: 2021Q4

REPORT INFORMATION
  Report Type: Report from Study
  Country: NL (occurrence: NL)
  Receive Date: 20211102
  Receipt Date: 20211115
  Transmission Date: 20220303
  Serious: Yes (Death)
  Sender: FDA-Public Use
  Company Number: NL-VER-202100152

PATIENT
  Age: 78 Year
  Sex: Male

DRUGS (1)
  1. TRIPTORELIN PAMOATE [Suspect]
     Active Substance: TRIPTORELIN PAMOATE
     Indication: Product used for unknown indication
     Dosage: (SOLV 2ML),
     Route: 030
     Dates: start: 20201117

REACTIONS (1)
  - Death [Fatal]

NARRATIVE: CASE EVENT DATE: 20210809
